FAERS Safety Report 5583619-4 (Version None)
Quarter: 2008Q1

REPORT INFORMATION
  Report Type: 
  Country: None (occurrence: None)
  Receive Date: 20080107
  Receipt Date: 20071228
  Transmission Date: 20080703
  Serious: Yes (Hospitalization, Other)
  Sender: FDA-Public Use
  Company Number: SE-ABBOTT-08P-150-0431760-00

PATIENT
  Age: 25 Year
  Sex: Male

DRUGS (4)
  1. VALPROIC ACID [Suspect]
     Indication: ELECTROCARDIOGRAM ABNORMAL
     Dosage: NOT REPORTED
  2. VALPROIC ACID [Suspect]
     Indication: EPILEPSY
     Dosage: NOT REPORTED
  3. VALPROIC ACID [Suspect]
     Indication: GRAND MAL CONVULSION
  4. ETHANOL [Concomitant]
     Indication: DRUG USE FOR UNKNOWN INDICATION
     Dosage: NOT REPORTED

REACTIONS (3)
  - DEPRESSED LEVEL OF CONSCIOUSNESS [None]
  - DRUG TOXICITY [None]
  - INTRACRANIAL PRESSURE INCREASED [None]
